FAERS Safety Report 4829234-9 (Version None)
Quarter: 2005Q4

REPORT INFORMATION
  Report Type: 
  Country: None (occurrence: None)
  Receive Date: 20051028
  Receipt Date: 20050908
  Transmission Date: 20060501
  Serious: No
  Sender: FDA-Public Use
  Company Number: COT_0211_2005

PATIENT
  Age: 66 Year
  Sex: Female

DRUGS (10)
  1. VENTAVIS [Suspect]
     Indication: PULMONARY HYPERTENSION
     Dosage: 2.5 MCG ONCE IH
     Route: 055
     Dates: start: 20050908, end: 20050908
  2. VENTAVIS [Suspect]
     Indication: PULMONARY HYPERTENSION
     Dosage: 5 MCG ONCE IH
     Route: 055
     Dates: start: 20050908, end: 20050908
  3. VENTAVIS [Suspect]
     Indication: PULMONARY HYPERTENSION
     Dosage: 2.5 MCG VARIABLE IH
     Route: 055
     Dates: start: 20050908
  4. LASIX [Concomitant]
  5. POTASSIUM [Concomitant]
  6. LISINOPRIL [Concomitant]
  7. COUMADIN [Concomitant]
  8. REVATIO [Concomitant]
  9. MULTI-VITAMIN [Concomitant]
  10. CALCIUM GLUCONATE [Concomitant]

REACTIONS (4)
  - CHEST PAIN [None]
  - COUGH [None]
  - DIZZINESS [None]
  - HEADACHE [None]
